FAERS Safety Report 7065115-0 (Version None)
Quarter: 2010Q4

REPORT INFORMATION
  Report Type: 
  Country: None (occurrence: None)
  Receive Date: 20101027
  Receipt Date: 19930714
  Transmission Date: 20110411
  Serious: Yes (Death, Hospitalization)
  Sender: FDA-Public Use
  Company Number: US-ROCHE-930201263001

PATIENT
  Age: 45 Year
  Sex: Male
  Weight: 63 kg

DRUGS (6)
  1. ROFERON-A [Suspect]
     Indication: KAPOSI'S SARCOMA
     Route: 058
     Dates: end: 19930714
  2. HIVID [Suspect]
     Route: 065
  3. AZT [Concomitant]
     Route: 065
  4. ZOVIRAX [Concomitant]
     Route: 065
  5. DIFLUCAN [Concomitant]
     Route: 065
  6. PENTAMIDINE ISETHIONATE [Concomitant]
     Route: 055

REACTIONS (2)
  - DEATH [None]
  - LEUKOCYTOSIS [None]
